FAERS Safety Report 22033834 (Version 1)
Quarter: 2023Q1

REPORT INFORMATION
  Report Type: Spontaneous
  Country: US (occurrence: None)
  Receive Date: 20230222
  Receipt Date: 20230222
  Transmission Date: 20230417
  Serious: Yes (Hospitalization)
  Sender: FDA-Public Use
  Company Number: None

PATIENT
  Sex: Male

DRUGS (1)
  1. CAPECITABINE [Suspect]
     Active Substance: CAPECITABINE
     Dosage: 1800 BID ORAL
     Route: 048

REACTIONS (4)
  - Diarrhoea [None]
  - Nausea [None]
  - Intestinal obstruction [None]
  - Therapy cessation [None]
